FAERS Safety Report 14847552 (Version 1)
Quarter: 2018Q2

REPORT INFORMATION
  Report Type: Spontaneous
  Country: DE (occurrence: DE)
  Receive Date: 20180504
  Receipt Date: 20180504
  Transmission Date: 20180711
  Serious: Yes (Other)
  Sender: FDA-Public Use
  Company Number: DE-MYLANLABS-2018M1024576

PATIENT
  Sex: Female

DRUGS (1)
  1. PAROXEDURA 40 MG TABLETTEN [Suspect]
     Active Substance: PAROXETINE HYDROCHLORIDE
     Indication: DEPRESSION
     Dosage: UNK
     Route: 048

REACTIONS (3)
  - Dysgeusia [Recovered/Resolved]
  - Product solubility abnormal [Recovered/Resolved]
  - Throat irritation [Recovered/Resolved]
